FAERS Safety Report 6252788-5 (Version None)
Quarter: 2009Q3

REPORT INFORMATION
  Report Type: 
  Country: None (occurrence: None)
  Receive Date: 20090701
  Receipt Date: 20090624
  Transmission Date: 20100115
  Serious: Yes (Other)
  Sender: FDA-Public Use
  Company Number: FR-BAXTER-2009BH010615

PATIENT
  Sex: Female
  Weight: 49 kg

DRUGS (3)
  1. CYCLOPHOSPHAMIDE [Suspect]
     Indication: BREAST CANCER
     Route: 065
     Dates: start: 20081103, end: 20081215
  2. EPIRUBICIN [Suspect]
     Indication: BREAST CANCER
     Route: 065
     Dates: start: 20081103, end: 20081215
  3. FLUOROURACIL [Suspect]
     Indication: BREAST CANCER
     Route: 065
     Dates: start: 20081103, end: 20081215

REACTIONS (1)
  - NEUTROPENIA [None]
